FAERS Safety Report 17829408 (Version 2)
Quarter: 2020Q2

REPORT INFORMATION
  Report Type: Spontaneous
  Country: US (occurrence: US)
  Receive Date: 20200527
  Receipt Date: 20200604
  Transmission Date: 20200714
  Serious: No
  Sender: FDA-Public Use
  Company Number: US-009507513-2005USA007487

PATIENT
  Age: 40 Year
  Sex: Female

DRUGS (11)
  1. PROGESTERONE. [Concomitant]
     Active Substance: PROGESTERONE
     Dosage: UNK
  2. DOXYCYCLINE. [Concomitant]
     Active Substance: DOXYCYCLINE
     Dosage: UNK
  3. DECADRON [Concomitant]
     Active Substance: DEXAMETHASONE
     Dosage: UNK
  4. ESTRADIOL. [Concomitant]
     Active Substance: ESTRADIOL
     Dosage: UNK
  5. FOLLISTIM AQ [Suspect]
     Active Substance: FOLLITROPIN
  6. OMNITROPE [Suspect]
     Active Substance: SOMATROPIN
     Dosage: UNK
  7. PRENATE [Concomitant]
     Dosage: UNK
  8. METHYLPREDNISOLONE. [Concomitant]
     Active Substance: METHYLPREDNISOLONE
     Dosage: UNK
  9. FOLLISTIM AQ [Suspect]
     Active Substance: FOLLITROPIN
     Indication: INFERTILITY FEMALE
     Dosage: 450 UNITS, AS DIRECTED FOR 10-16 DAYS
     Route: 058
     Dates: start: 20200311
  10. GANIRELIX ACETATE. [Concomitant]
     Active Substance: GANIRELIX ACETATE
     Dosage: UNK
  11. GONADOTROPIN, CHORIONIC [Concomitant]
     Active Substance: CHORIOGONADOTROPIN ALFA
     Dosage: UNK

REACTIONS (1)
  - Adverse event [Not Recovered/Not Resolved]

NARRATIVE: CASE EVENT DATE: 202005
